FAERS Safety Report 8849905 (Version 1)
Quarter: 2012Q4

REPORT INFORMATION
  Report Type: 
  Country: US (occurrence: US)
  Receive Date: 20121019
  Receipt Date: 20121019
  Transmission Date: 20130627
  Serious: Yes (Hospitalization, Other)
  Sender: FDA-Public Use
  Company Number: US-ROCHE-1073195

PATIENT
  Age: 55 Year
  Sex: Female
  Weight: 58.57 kg

DRUGS (5)
  1. PEGASYS [Suspect]
     Indication: HEPATITIS C
     Route: 058
     Dates: start: 20120502, end: 20121010
  2. RIBASPHERE [Suspect]
     Indication: HEPATITIS C
     Route: 048
     Dates: start: 20120502, end: 20121016
  3. TELAPREVIR [Suspect]
     Indication: HEPATITIS C
     Route: 065
     Dates: start: 20120502, end: 20120724
  4. PROCRIT [Concomitant]
     Indication: ANAEMIA
     Dosage: 40 000
     Route: 065
     Dates: start: 20120724, end: 20120919
  5. ATACAND [Concomitant]
     Indication: HYPERTENSION
     Route: 048

REACTIONS (14)
  - Anaemia [Unknown]
  - Pancreatitis [Recovered/Resolved]
  - Hypersomnia [Unknown]
  - Chills [Unknown]
  - Abdominal distension [Unknown]
  - Fatigue [Unknown]
  - Hepatic pain [Unknown]
  - Oral pain [Unknown]
  - Tongue discolouration [Unknown]
  - Oedema mouth [Unknown]
  - Oral herpes [Unknown]
  - Red blood cell count decreased [Unknown]
  - Alopecia [Recovering/Resolving]
  - Osteonecrosis [Not Recovered/Not Resolved]
